FAERS Safety Report 7582664-7 (Version None)
Quarter: 2011Q2

REPORT INFORMATION
  Report Type: 
  Country: None (occurrence: None)
  Receive Date: 20110630
  Receipt Date: 20110627
  Transmission Date: 20111010
  Serious: No
  Sender: FDA-Public Use
  Company Number: US-PFIZER INC-2011142876

PATIENT
  Sex: Female

DRUGS (2)
  1. ADVIL LIQUI-GELS [Suspect]
     Dosage: UNK
  2. ADVIL PM [Suspect]

REACTIONS (3)
  - ACCIDENTAL OVERDOSE [None]
  - PARAESTHESIA [None]
  - HYPOAESTHESIA [None]
